FAERS Safety Report 16201696 (Version 2)
Quarter: 2019Q2

REPORT INFORMATION
  Report Type: Spontaneous
  Country: IN (occurrence: IN)
  Receive Date: 20190416
  Receipt Date: 20190506
  Transmission Date: 20190711
  Serious: Yes (Death, Hospitalization, Other)
  Sender: FDA-Public Use
  Company Number: IN-ACCORD-121616

PATIENT
  Age: 60 Year
  Sex: Male

DRUGS (6)
  1. PACLITAXEL/PACLITAXEL LIPOSOME [Suspect]
     Active Substance: PACLITAXEL
     Indication: PANCREATIC CARCINOMA STAGE III
     Dosage: (70 MG/M2), 120 MG RECONSTITUTED IN 250 ML OF 5% DEXTROSE SOLUTION ADMINISTERED OVER 1.5 H
     Route: 042
     Dates: start: 2017
  2. CHLORPHENAMINE [Concomitant]
     Active Substance: CHLORPHENIRAMINE MALEATE
     Indication: PREMEDICATION
     Dosage: ON DAYS 8 AND 15
     Route: 042
     Dates: start: 2017
  3. GEMCITABINE/GEMCITABINE HYDROCHLORIDE [Suspect]
     Active Substance: GEMCITABINE\GEMCITABINE HYDROCHLORIDE
     Indication: PANCREATIC CARCINOMA STAGE III
     Dosage: (800 MG/M2), ON DAYS 1, 8 AND 15 EVERY 4 WEEKS, 1.4
     Route: 042
     Dates: start: 201705
  4. RANITIDINE. [Concomitant]
     Active Substance: RANITIDINE
     Indication: PREMEDICATION
     Dosage: ON DAYS 8 AND 15
     Route: 042
     Dates: start: 2017
  5. ONDANSETRON [Concomitant]
     Active Substance: ONDANSETRON
     Indication: NAUSEA
     Dosage: ON DAYS 8 AND 15
     Route: 042
     Dates: start: 2017
  6. DEXAMETHASONE. [Concomitant]
     Active Substance: DEXAMETHASONE
     Indication: PREMEDICATION
     Dosage: ON DAYS 8 AND 15
     Route: 042
     Dates: start: 2017

REACTIONS (3)
  - Nausea [Unknown]
  - Neuropathy peripheral [Recovered/Resolved]
  - Anaemia [Recovered/Resolved]

NARRATIVE: CASE EVENT DATE: 2017
